FAERS Safety Report 9720268 (Version 3)
Quarter: 2014Q2

REPORT INFORMATION
  Report Type: Report from Study
  Country: CA (occurrence: CA)
  Receive Date: 20131129
  Receipt Date: 20140529
  Transmission Date: 20141212
  Serious: Yes (Hospitalization, Other)
  Sender: FDA-Public Use
  Company Number: CA-ROCHE-1149834

PATIENT
  Age: 74 Year
  Sex: Male
  Weight: 117.9 kg

DRUGS (13)
  1. RITUXAN [Suspect]
     Indication: RHEUMATOID ARTHRITIS
     Route: 042
     Dates: start: 20120312
  2. RITUXAN [Suspect]
     Route: 042
     Dates: start: 20130429
  3. LASIX [Suspect]
     Indication: PRODUCT USED FOR UNKNOWN INDICATION
     Route: 065
  4. DIPHENHYDRAMINE HCL [Concomitant]
     Indication: PREMEDICATION
     Route: 048
     Dates: start: 20120312
  5. ACETAMINOPHEN [Concomitant]
     Indication: PREMEDICATION
     Route: 048
     Dates: start: 20120312, end: 20121024
  6. METHYLPREDNISOLONE [Concomitant]
     Indication: PREMEDICATION
     Route: 042
     Dates: start: 20120312
  7. PLAQUENIL [Concomitant]
  8. TYLENOL [Concomitant]
  9. RANITIDINE [Concomitant]
  10. ATROVENT [Concomitant]
  11. SPIRIVA [Concomitant]
  12. ADVAIR [Concomitant]
  13. ALENDRONATE [Concomitant]

REACTIONS (8)
  - Lower respiratory tract infection [Recovered/Resolved]
  - Idiopathic pulmonary fibrosis [Unknown]
  - Lower respiratory tract infection [Recovered/Resolved]
  - Wound [Recovered/Resolved]
  - Peripheral swelling [Not Recovered/Not Resolved]
  - Burning sensation [Recovered/Resolved]
  - Erythema [Recovered/Resolved]
  - Fatigue [Unknown]
